FAERS Safety Report 7097108-1 (Version None)
Quarter: 2010Q4

REPORT INFORMATION
  Report Type: 
  Country: None (occurrence: None)
  Receive Date: 20101111
  Receipt Date: 20101104
  Transmission Date: 20110411
  Serious: Yes (Hospitalization)
  Sender: FDA-Public Use
  Company Number: US-PFIZER INC-2010141038

PATIENT
  Sex: Male
  Weight: 69 kg

DRUGS (7)
  1. CADUET [Suspect]
     Indication: BLOOD CHOLESTEROL INCREASED
     Dosage: 2.5/20 MG, 1X/DAY
     Route: 048
  2. SOTALOL [Concomitant]
     Indication: CARDIAC DISORDER
     Dosage: 80 MG, UNK
     Route: 048
  3. PRINIVIL [Concomitant]
     Indication: BLOOD PRESSURE ABNORMAL
     Dosage: UNK
  4. ISOSORBIDE [Concomitant]
     Indication: ANGINA PECTORIS
     Dosage: 30 MG, 1X/DAY
  5. ACETYLSALICYLIC ACID [Concomitant]
     Indication: ANTICOAGULANT THERAPY
     Dosage: 81 MG, UNK
  6. CALCIUM [Concomitant]
     Dosage: 1500 MG, 1X/DAY
  7. PLAVIX [Concomitant]
     Indication: ANTICOAGULANT THERAPY
     Dosage: 75 MG, 1X/DAY

REACTIONS (2)
  - LOW DENSITY LIPOPROTEIN INCREASED [None]
  - STENT PLACEMENT [None]
